FAERS Safety Report 17923028 (Version 1)
Quarter: 2020Q2

REPORT INFORMATION
  Report Type: Spontaneous
  Country: US (occurrence: US)
  Receive Date: 20200621
  Receipt Date: 20200621
  Transmission Date: 20200714
  Serious: Yes (Hospitalization, Disabling)
  Sender: FDA-Public Use
  Company Number: None

PATIENT
  Age: 34 Year
  Sex: Female
  Weight: 58.5 kg

DRUGS (1)
  1. INDOMETHACIN. [Suspect]
     Active Substance: INDOMETHACIN
     Indication: CARPAL TUNNEL SYNDROME
     Dosage: ?          QUANTITY:2 CAPSULE(S);?
     Route: 048
     Dates: start: 20200613, end: 20200613

REACTIONS (5)
  - Tremor [None]
  - Dysphemia [None]
  - Muscle spasms [None]
  - Speech disorder [None]
  - Malaise [None]

NARRATIVE: CASE EVENT DATE: 20200613
